FAERS Safety Report 4284233-3 (Version None)
Quarter: 2004Q1

REPORT INFORMATION
  Report Type: 
  Country: None (occurrence: None)
  Receive Date: 20040203
  Receipt Date: 20040121
  Transmission Date: 20041129
  Serious: Yes (Life-Threatening, Hospitalization)
  Sender: FDA-Public Use
  Company Number: US-ROCHE-356817

PATIENT
  Age: 47 Year
  Sex: Female
  Weight: 115.7 kg

DRUGS (2)
  1. PEGASYS [Suspect]
     Indication: HEPATITIS C
     Dosage: DOSING STATED AS 180 MG WEEKLY.
     Route: 058
     Dates: start: 20031023, end: 20040119
  2. COPEGUS [Suspect]
     Indication: HEPATITIS C
     Route: 048
     Dates: start: 20031023, end: 20040119

REACTIONS (1)
  - DIABETIC KETOACIDOSIS [None]
